FAERS Safety Report 7249689-2 (Version None)
Quarter: 2011Q1

REPORT INFORMATION
  Report Type: 
  Country: None (occurrence: None)
  Receive Date: 20110128
  Receipt Date: 20110118
  Transmission Date: 20110831
  Serious: Yes (Other)
  Sender: FDA-Public Use
  Company Number: CA-JNJFOC-20110105244

PATIENT
  Sex: Female
  Weight: 89 kg

DRUGS (4)
  1. IMURAN [Concomitant]
  2. REMICADE [Suspect]
     Indication: CROHN'S DISEASE
     Route: 042
  3. OMEPRAZOLE [Concomitant]
  4. ACCURETIC [Concomitant]

REACTIONS (3)
  - HERNIA [None]
  - COLOSTOMY CLOSURE [None]
  - ERYTHEMA [None]
